FAERS Safety Report 6826382-9 (Version None)
Quarter: 2010Q3

REPORT INFORMATION
  Report Type: 
  Country: None (occurrence: None)
  Receive Date: 20100709
  Receipt Date: 20100706
  Transmission Date: 20110219
  Serious: Yes (Hospitalization)
  Sender: FDA-Public Use
  Company Number: CH-AMGEN-KDC422263

PATIENT
  Age: 63 Year
  Sex: Female

DRUGS (8)
  1. VECTIBIX [Suspect]
     Indication: COLORECTAL CANCER
     Dates: start: 20100125
  2. XELODA [Suspect]
     Route: 048
     Dates: start: 20100201
  3. RADIATION THERAPY [Suspect]
     Dates: start: 20100201
  4. BLOPRESS [Concomitant]
     Route: 048
     Dates: start: 20100115
  5. CONCOR [Concomitant]
     Route: 048
     Dates: start: 20100115
  6. IMODIUM [Concomitant]
     Route: 048
     Dates: start: 20100428
  7. PANTOZOL [Concomitant]
     Route: 048
     Dates: start: 20100428
  8. KALIUM [Concomitant]
     Route: 048
     Dates: start: 20100428

REACTIONS (2)
  - GASTROINTESTINAL ANASTOMOTIC LEAK [None]
  - HAEMATOMA INFECTION [None]
